FAERS Safety Report 16643505 (Version 1)
Quarter: 2019Q3

REPORT INFORMATION
  Report Type: Spontaneous
  Country: US (occurrence: US)
  Receive Date: 20190729
  Receipt Date: 20190729
  Transmission Date: 20191004
  Serious: No
  Sender: FDA-Public Use
  Company Number: US-PRINSTON PHARMACEUTICAL INC.-2019PRN00389

PATIENT
  Age: 63 Year
  Weight: 49.89 kg

DRUGS (4)
  1. MULTIVITAMIN [Concomitant]
     Active Substance: VITAMINS
  2. CLONAZEPAM. [Suspect]
     Active Substance: CLONAZEPAM
     Indication: ANXIETY
     Dosage: 0.5 MG, 1X/DAY, AT NIGHT BEFORE SLEEP
     Route: 048
     Dates: start: 20190313, end: 20190403
  3. KRILL OIL [Concomitant]
     Active Substance: DIETARY SUPPLEMENT\KRILL OIL
     Dosage: TAKEN IRREGULARLY
  4. METOPROLOL. [Concomitant]
     Active Substance: METOPROLOL
     Indication: HEART RATE INCREASED
     Dosage: 25 MG, 1X/DAY, AT NIGHT

REACTIONS (15)
  - Withdrawal syndrome [Unknown]
  - Palpitations [Unknown]
  - Feeling abnormal [Unknown]
  - Drug ineffective [Recovered/Resolved]
  - Decreased appetite [Unknown]
  - Headache [Recovered/Resolved]
  - Vision blurred [Unknown]
  - Dry eye [Unknown]
  - Dizziness [Unknown]
  - Product substitution issue [Recovered/Resolved]
  - Presyncope [Recovered/Resolved]
  - Weight decreased [Unknown]
  - Insomnia [Unknown]
  - Fatigue [Unknown]
  - Cardiac disorder [Unknown]

NARRATIVE: CASE EVENT DATE: 201903
